FAERS Safety Report 9165712 (Version 7)
Quarter: 2014Q3

REPORT INFORMATION
  Report Type: Spontaneous
  Country: US (occurrence: None)
  Receive Date: 20130228
  Receipt Date: 20140912
  Transmission Date: 20150326
  Serious: Yes (Hospitalization, Other)
  Sender: FDA-Public Use
  Company Number: JPI-P-029958

PATIENT
  Age: 76 Year
  Sex: Female

DRUGS (1)
  1. XYREM [Suspect]
     Active Substance: SODIUM OXYBATE
     Indication: PRODUCT USED FOR UNKNOWN INDICATION
     Dosage: (2.25 GM 2 IN 1 D)
     Route: 048
     Dates: start: 200308, end: 2004

REACTIONS (6)
  - Pulmonary mass [None]
  - Lung carcinoma cell type unspecified recurrent [None]
  - Mass [None]
  - Hip fracture [None]
  - Herpes zoster [None]
  - Clostridium difficile colitis [None]

NARRATIVE: CASE EVENT DATE: 201301
